FAERS Safety Report 18501685 (Version 1)
Quarter: 2020Q4

REPORT INFORMATION
  Report Type: Spontaneous
  Country: US (occurrence: US)
  Receive Date: 20201113
  Receipt Date: 20201113
  Transmission Date: 20210114
  Serious: Yes (Other)
  Sender: FDA-Public Use
  Company Number: None

PATIENT
  Age: 73 Year
  Sex: Female
  Weight: 72.68 kg

DRUGS (10)
  1. CAPECITABINE. [Suspect]
     Active Substance: CAPECITABINE
     Indication: BREAST CANCER FEMALE
     Route: 048
     Dates: start: 20200610, end: 20201113
  2. ONDANSETRON [Concomitant]
     Active Substance: ONDANSETRON
  3. DOCUSATE [Concomitant]
     Active Substance: DOCUSATE
  4. CLINDAMYCIN. [Concomitant]
     Active Substance: CLINDAMYCIN
  5. LISINOPRIL. [Concomitant]
     Active Substance: LISINOPRIL
  6. PROCHLORPERAZINE. [Concomitant]
     Active Substance: PROCHLORPERAZINE
  7. CELECOXIB. [Concomitant]
     Active Substance: CELECOXIB
  8. EXEMESTANE. [Concomitant]
     Active Substance: EXEMESTANE
  9. HCTZ [Concomitant]
     Active Substance: HYDROCHLOROTHIAZIDE
  10. OXYCONTIN [Concomitant]
     Active Substance: OXYCODONE HYDROCHLORIDE

REACTIONS (3)
  - Nausea [None]
  - Skin exfoliation [None]
  - Diarrhoea [None]

NARRATIVE: CASE EVENT DATE: 20201113
